FAERS Safety Report 19832909 (Version 8)
Quarter: 2021Q4

REPORT INFORMATION
  Report Type: Spontaneous
  Country: US (occurrence: US)
  Receive Date: 20210915
  Receipt Date: 20211216
  Transmission Date: 20220303
  Serious: Yes (Hospitalization)
  Sender: FDA-Public Use
  Company Number: US-CELGENE-USA-20210902235

PATIENT
  Age: 73 Year
  Sex: Female
  Weight: 70.370 kg

DRUGS (67)
  1. ABRAXANE [Suspect]
     Active Substance: PACLITAXEL
     Indication: Pancreatic carcinoma
     Dosage: 185 MILLIGRAM
     Route: 041
     Dates: start: 20210809
  2. ABRAXANE [Suspect]
     Active Substance: PACLITAXEL
     Route: 041
     Dates: start: 20210421, end: 20210728
  3. ABRAXANE [Suspect]
     Active Substance: PACLITAXEL
     Route: 041
     Dates: start: 20210330, end: 20210414
  4. ABRAXANE [Suspect]
     Active Substance: PACLITAXEL
     Dosage: 125MG/M2, THEN 100MG/M2
     Route: 041
     Dates: start: 20210302, end: 20210908
  5. GEMCITABINE [Concomitant]
     Active Substance: GEMCITABINE
     Indication: Product used for unknown indication
     Route: 065
     Dates: start: 20210908
  6. ACETAMINOPHEN [Concomitant]
     Active Substance: ACETAMINOPHEN
     Indication: Pain
     Dosage: 650 MILLIGRAM
     Route: 048
     Dates: start: 202109, end: 202110
  7. ASPIRIN [Concomitant]
     Active Substance: ASPIRIN
     Indication: Supportive care
     Dosage: 81 MILLIGRAM
     Route: 048
     Dates: start: 20210910, end: 20210910
  8. FENTANYL [Concomitant]
     Active Substance: FENTANYL
     Indication: Abdominal pain
     Dosage: 4 MICROGRAM
     Route: 062
     Dates: start: 202109, end: 202110
  9. OXYCODONE [Concomitant]
     Active Substance: OXYCODONE
     Indication: Abdominal pain
     Dosage: 5 MILLIGRAM
     Route: 048
     Dates: start: 20211002, end: 20211006
  10. TRAMADOL [Concomitant]
     Active Substance: TRAMADOL
     Indication: Abdominal pain
     Dosage: 50 MILLIGRAM
     Route: 048
     Dates: start: 20210926, end: 20210926
  11. ONDANSETRON [Concomitant]
     Active Substance: ONDANSETRON
     Indication: Nausea
     Dosage: 4 MILLIGRAM
     Route: 048
     Dates: start: 202109, end: 202110
  12. ONDANSETRON [Concomitant]
     Active Substance: ONDANSETRON
     Dosage: 8 MILLIGRAM
     Route: 048
     Dates: start: 202109, end: 202109
  13. PROCHLORPERAZINE [Concomitant]
     Active Substance: PROCHLORPERAZINE
     Indication: Nausea
     Dosage: 5 MILLIGRAM
     Route: 048
     Dates: start: 202109, end: 202110
  14. PROCHLORPERAZINE [Concomitant]
     Active Substance: PROCHLORPERAZINE
     Dosage: 10 MICROMOLE
     Route: 048
     Dates: start: 20210906, end: 20210911
  15. BUMETANIDE [Concomitant]
     Active Substance: BUMETANIDE
     Indication: Oedema
     Dosage: 2 MILLIGRAM
     Route: 041
     Dates: start: 20210911, end: 20210911
  16. CARVEDILOL [Concomitant]
     Active Substance: CARVEDILOL
     Indication: Hypertension
     Dosage: 12.5 MILLIGRAM
     Route: 048
     Dates: start: 20210909, end: 20210911
  17. CARVEDILOL [Concomitant]
     Active Substance: CARVEDILOL
     Dosage: 25 MILLIGRAM
     Route: 048
     Dates: start: 20210906, end: 20210909
  18. FUROSEMIDE [Concomitant]
     Active Substance: FUROSEMIDE
     Indication: Oedema
     Dosage: 12 MILLIGRAM
     Route: 048
     Dates: start: 20211005, end: 20211008
  19. FUROSEMIDE [Concomitant]
     Active Substance: FUROSEMIDE
     Dosage: 120 MILLIGRAM
     Route: 041
     Dates: start: 20210930, end: 20211005
  20. LASIX [Concomitant]
     Active Substance: FUROSEMIDE
     Indication: Oedema
     Dosage: 120 MILLIGRAM
     Route: 041
     Dates: start: 20210923, end: 20210930
  21. LASIX [Concomitant]
     Active Substance: FUROSEMIDE
     Dosage: 20 MILLIGRAM
     Route: 041
     Dates: start: 202109, end: 202109
  22. LASIX [Concomitant]
     Active Substance: FUROSEMIDE
     Dosage: 10 MILLIGRAM
     Route: 041
     Dates: start: 202109, end: 202109
  23. LASIX [Concomitant]
     Active Substance: FUROSEMIDE
     Dosage: 40 MILLIGRAM
     Route: 048
     Dates: start: 202109, end: 202109
  24. LASIX [Concomitant]
     Active Substance: FUROSEMIDE
     Route: 041
     Dates: start: 20210907, end: 20210911
  25. LASIX [Concomitant]
     Active Substance: FUROSEMIDE
     Dosage: 60 MILLIGRAM
     Route: 041
     Dates: start: 20210905, end: 20210907
  26. ISORDIL [Concomitant]
     Active Substance: ISOSORBIDE DINITRATE
     Indication: Cardiac failure congestive
     Dosage: 90 MILLIGRAM
     Route: 048
     Dates: start: 202109, end: 202110
  27. ISORDIL [Concomitant]
     Active Substance: ISOSORBIDE DINITRATE
     Dosage: 60 MILLIGRAM
     Route: 048
     Dates: start: 20210926, end: 20210926
  28. ISORDIL [Concomitant]
     Active Substance: ISOSORBIDE DINITRATE
     Dosage: 30 MILLIGRAM
     Route: 048
     Dates: start: 20210926, end: 20210926
  29. ISOSORBIDE MONONITRATE [Concomitant]
     Active Substance: ISOSORBIDE MONONITRATE
     Indication: Cardiac failure congestive
     Dosage: 60 MILLIGRAM
     Route: 048
     Dates: start: 20211004, end: 20211008
  30. METOPROLOL SUCCINATE [Concomitant]
     Active Substance: METOPROLOL SUCCINATE
     Indication: Hypertension
     Dosage: 50 MILLIGRAM
     Route: 048
     Dates: start: 20210902, end: 20210906
  31. METOPROLOL TARTRATE [Concomitant]
     Active Substance: METOPROLOL TARTRATE
     Indication: Hypertension
     Dosage: 100 MILLIGRAM
     Route: 048
     Dates: start: 202109, end: 202110
  32. AMLODIPINE [Concomitant]
     Active Substance: AMLODIPINE BESYLATE
     Indication: Hypertension
     Dosage: 10 MILLIGRAM
     Route: 048
     Dates: start: 20210927, end: 20211006
  33. AMLODIPINE [Concomitant]
     Active Substance: AMLODIPINE BESYLATE
     Dosage: 5 MILLIGRAM
     Route: 048
     Dates: start: 20210902, end: 20210926
  34. HYDRALAZINE [Concomitant]
     Active Substance: HYDRALAZINE HYDROCHLORIDE
     Indication: Hypertension
     Dosage: 25 MILLIGRAM
     Route: 048
     Dates: start: 20210906, end: 20210906
  35. METOLAZONE [Concomitant]
     Active Substance: METOLAZONE
     Indication: Hypertension
     Dosage: 10 MILLIGRAM
     Route: 048
     Dates: start: 20210907, end: 20210926
  36. ENOXAPARIN [Concomitant]
     Active Substance: ENOXAPARIN
     Indication: Pulmonary oedema
     Dosage: 100 MILLIGRAM
     Route: 041
     Dates: start: 20211008, end: 20211008
  37. ENOXAPARIN [Concomitant]
     Active Substance: ENOXAPARIN
     Indication: Thrombosis prophylaxis
     Dosage: 80 MILLIGRAM
     Route: 041
     Dates: start: 202109, end: 202110
  38. ENOXAPARIN [Concomitant]
     Active Substance: ENOXAPARIN
     Dosage: 1920 MILLIGRAM
     Route: 041
     Dates: start: 20211009, end: 202110
  39. ENOXAPARIN [Concomitant]
     Active Substance: ENOXAPARIN
     Dosage: 1.25 MILLIGRAM
     Route: 041
     Dates: start: 20210902, end: 20210910
  40. DOCUSATE SODIUM [Concomitant]
     Active Substance: DOCUSATE SODIUM
     Indication: Constipation prophylaxis
     Dosage: 200 MILLIGRAM
     Route: 048
     Dates: start: 20210908, end: 20210913
  41. LACTULOSE [Concomitant]
     Active Substance: LACTULOSE
     Indication: Constipation prophylaxis
     Dosage: 60 MILLIGRAM
     Route: 048
     Dates: start: 20210909, end: 20210911
  42. PANCRELIPASE [Concomitant]
     Active Substance: PANCRELIPASE
     Indication: Pancreatic failure
     Dosage: 108000 IU (INTERNATIONAL UNIT)
     Route: 048
     Dates: start: 202109, end: 202110
  43. POLYETHYLENE GLYCOL [Concomitant]
     Active Substance: POLYETHYLENE GLYCOL
     Indication: Constipation
     Dosage: 17 GRAM
     Route: 048
     Dates: start: 202109, end: 202110
  44. POLYETHYLENE GLYCOL [Concomitant]
     Active Substance: POLYETHYLENE GLYCOL
     Dosage: 34 GRAM
     Route: 048
     Dates: start: 202109, end: 202109
  45. SODIUM PHOSPHATE [Concomitant]
     Active Substance: SODIUM PHOSPHATE
     Indication: Constipation
     Dosage: 1 UNKNOWN
     Route: 065
     Dates: start: 20210915, end: 20210916
  46. MEDROL [Concomitant]
     Active Substance: METHYLPREDNISOLONE
     Indication: Lung disorder
     Dosage: 960 MILLIGRAM
     Route: 041
     Dates: start: 202109, end: 202110
  47. MEDROL [Concomitant]
     Active Substance: METHYLPREDNISOLONE
     Dosage: 120 MILLIGRAM
     Route: 041
     Dates: start: 202109, end: 202110
  48. MEDROL [Concomitant]
     Active Substance: METHYLPREDNISOLONE
     Dosage: 125 MILLIGRAM
     Route: 041
     Dates: start: 20210901, end: 20210901
  49. PREDNISONE [Concomitant]
     Active Substance: PREDNISONE
     Indication: Constipation
     Dosage: 720 MILLIGRAM
     Route: 048
     Dates: start: 20211007, end: 20211008
  50. PREDNISONE [Concomitant]
     Active Substance: PREDNISONE
     Dosage: 40 MILLIGRAM
     Route: 048
     Dates: start: 20210906, end: 20211005
  51. PREDNISONE [Concomitant]
     Active Substance: PREDNISONE
     Dosage: 60 MILLIGRAM
     Route: 048
     Dates: start: 20211001, end: 20211004
  52. PREDNISONE [Concomitant]
     Active Substance: PREDNISONE
     Dosage: 55 MILLIGRAM
     Route: 048
     Dates: start: 20210908, end: 20210909
  53. PREDNISONE [Concomitant]
     Active Substance: PREDNISONE
     Dosage: 20 MILLIGRAM
     Route: 048
     Dates: start: 20210907, end: 20210907
  54. INSULIN GLARGINE [Concomitant]
     Active Substance: INSULIN GLARGINE
     Indication: Diabetes mellitus
     Dosage: 25 MILLIGRAM
     Route: 041
     Dates: start: 202109, end: 202110
  55. INSULIN GLARGINE [Concomitant]
     Active Substance: INSULIN GLARGINE
     Dosage: 18 IU (INTERNATIONAL UNIT)
     Route: 041
     Dates: start: 20210928, end: 20210928
  56. INSULIN GLARGINE [Concomitant]
     Active Substance: INSULIN GLARGINE
     Dosage: 14 IU (INTERNATIONAL UNIT)
     Route: 041
     Dates: start: 20210927, end: 20210927
  57. INSULIN GLARGINE [Concomitant]
     Active Substance: INSULIN GLARGINE
     Dosage: 10 IU (INTERNATIONAL UNIT)
     Route: 041
     Dates: start: 20210926, end: 20210926
  58. INSULIN LISPRO [Concomitant]
     Active Substance: INSULIN LISPRO
     Indication: Diabetes mellitus
     Dosage: 2 IU (INTERNATIONAL UNIT)
     Route: 041
     Dates: start: 20211006, end: 20211008
  59. INSULIN LISPRO [Concomitant]
     Active Substance: INSULIN LISPRO
     Dosage: 3 IU (INTERNATIONAL UNIT)
     Route: 041
     Dates: start: 20210908, end: 20210908
  60. Pro-Stat Sugar Free Liquid [Concomitant]
     Indication: Nutritional supplementation
     Dosage: 3 UNKNOWN
     Route: 048
     Dates: start: 20210904, end: 20210904
  61. CHOLECALCIFEROL [Concomitant]
     Active Substance: CHOLECALCIFEROL
     Indication: Product communication issue
     Dosage: 1000 IU (INTERNATIONAL UNIT)
     Route: 048
     Dates: start: 202109, end: 202110
  62. MAGNESIUM SULFATE [Concomitant]
     Active Substance: MAGNESIUM SULFATE
     Indication: Supportive care
     Dosage: 2 GRAM
     Route: 041
     Dates: start: 20210927, end: 20210930
  63. POTASSIUM CHLORIDE [Concomitant]
     Active Substance: POTASSIUM CHLORIDE
     Indication: Supportive care
     Dosage: 20 MICROGRAM
     Route: 048
     Dates: start: 20210920, end: 20210920
  64. POTASSIUM CHLORIDE [Concomitant]
     Active Substance: POTASSIUM CHLORIDE
     Dosage: 240 MICROGRAM
     Route: 048
     Dates: start: 20210911, end: 20210911
  65. POTASSIUM CHLORIDE [Concomitant]
     Active Substance: POTASSIUM CHLORIDE
     Dosage: 40 MICROGRAM
     Route: 048
     Dates: start: 202109, end: 202109
  66. TECHNETIUM TC 99M PENTETATE [Concomitant]
     Indication: Supportive care
     Dosage: 34.6 MILLICURIES
     Route: 065
     Dates: start: 20211009, end: 20211009
  67. TECHNETIUM TC 99M ALBUMIN AGGREGATED [Concomitant]
     Indication: Supportive care
     Dosage: 3.5 MILLICURIES
     Route: 065
     Dates: start: 20211009, end: 20211009

REACTIONS (4)
  - Respiratory disorder [Recovered/Resolved]
  - Cardiac failure [Recovered/Resolved]
  - Interstitial lung disease [Recovered/Resolved]
  - Embolism [Recovered/Resolved]

NARRATIVE: CASE EVENT DATE: 20210902
